FAERS Safety Report 15128904 (Version 1)
Quarter: 2018Q3

REPORT INFORMATION
  Report Type: Spontaneous
  Country: US (occurrence: US)
  Receive Date: 20180711
  Receipt Date: 20180711
  Transmission Date: 20181010
  Serious: Yes (Other)
  Sender: FDA-Public Use
  Company Number: US-CATALENT PHARMA SOLUTIONS-CAT-000316-2018

PATIENT
  Age: 64 Year
  Sex: Female
  Weight: 115 kg

DRUGS (1)
  1. VALPROIC ACID. [Suspect]
     Active Substance: VALPROIC ACID
     Indication: BIPOLAR DISORDER
     Dosage: 1500 MG, DAILY
     Route: 065

REACTIONS (2)
  - Delirium [Recovered/Resolved]
  - Ammonia increased [Recovered/Resolved]
